FAERS Safety Report 7395220-0 (Version None)
Quarter: 2011Q2

REPORT INFORMATION
  Report Type: 
  Country: None (occurrence: None)
  Receive Date: 20110405
  Receipt Date: 20070206
  Transmission Date: 20111010
  Serious: Yes (Death, Hospitalization, Other)
  Sender: FDA-Public Use
  Company Number: US-BAYER-200710407BWH

PATIENT
  Sex: Male
  Weight: 72.562 kg

DRUGS (38)
  1. CARTIA XT [Concomitant]
     Dosage: 180 MG, QD
     Route: 048
     Dates: start: 20011202
  2. NITROGLYCERIN [Concomitant]
     Dosage: UNK
     Route: 042
  3. TRASYLOL [Suspect]
     Indication: AORTIC VALVE REPLACEMENT
     Dosage: 200 ML, ONCE
     Route: 042
     Dates: start: 20051222, end: 20051222
  4. GLUCOTROL [Concomitant]
     Indication: DIABETES MELLITUS
     Dosage: 10 MG, BID
  5. HYTRIN [Concomitant]
     Indication: GOUT
     Dosage: 5 MG, QD
     Route: 048
     Dates: start: 19950725
  6. METFORMIN [Concomitant]
     Indication: DIABETES MELLITUS
     Dosage: 850 MG, BID
     Route: 048
  7. PRINIVIL [Concomitant]
     Dosage: 20 MG, QD
     Dates: start: 20001106
  8. PROTAMINE SULFATE [Concomitant]
     Route: 042
  9. AMIODARONE HCL [Concomitant]
     Route: 042
  10. PHENYLEPHRINE HCL [Concomitant]
     Route: 042
  11. PANCURONIUM BROMIDE [Concomitant]
     Dosage: 5 MG, UNK
     Route: 042
     Dates: start: 20051222, end: 20051222
  12. RED BLOOD CELLS [Concomitant]
     Dosage: 2 U, UNK
     Dates: start: 20051222
  13. MACROBID [Concomitant]
     Indication: URINARY TRACT INFECTION
     Dosage: 100 MG, BID
     Route: 048
     Dates: start: 20051031
  14. SODIUM NITROPRUSSIDE [Concomitant]
     Route: 042
  15. EPINEPHRINE [Concomitant]
     Route: 042
  16. LASIX [Concomitant]
     Route: 042
  17. INSULIN [Concomitant]
     Dosage: 20 U, UNK
     Route: 042
  18. MORPHINE SULFATE [Concomitant]
     Dosage: 2 G, UNK
     Route: 042
     Dates: start: 20051222, end: 20051222
  19. MAGNESIUM SULFATE [Concomitant]
     Dosage: 16.5 MG, UNK
     Route: 042
     Dates: start: 20051222
  20. HEPARIN SODIUM [Concomitant]
     Route: 042
  21. DIOVAN [Concomitant]
     Indication: HYPERTENSION
     Dosage: 160 MG, QD
     Route: 048
     Dates: start: 20021219
  22. LEVAQUIN [Concomitant]
     Dosage: 500 MG, QD
     Route: 048
     Dates: start: 20050901
  23. BUMEX [Concomitant]
     Dosage: 2 MG, ONCE
     Route: 042
     Dates: start: 20051222
  24. PAPAVERINE [Concomitant]
     Route: 042
  25. MIDAZOLAM HCL [Concomitant]
     Dosage: 5 MG, UNK
     Route: 042
     Dates: start: 20051222, end: 20051222
  26. LOPRESSOR [Concomitant]
     Indication: HYPERTENSION
     Dosage: 100 MG, BID
     Route: 048
     Dates: end: 20050101
  27. ALLOPURINOL [Concomitant]
     Dosage: UNK
     Route: 048
     Dates: start: 19960101
  28. MEPERIDINE [Concomitant]
     Dosage: 25 MG, UNK
     Route: 042
     Dates: start: 20051222
  29. DOBUTAMINE [Concomitant]
     Route: 042
  30. LIDOCAINE [Concomitant]
     Dosage: 100 MG, UNK
     Route: 042
     Dates: start: 20051222, end: 20051222
  31. TRASYLOL [Suspect]
     Indication: CORONARY ARTERY BYPASS
     Dosage: 1 ML, ONCE
     Route: 042
     Dates: start: 20051222, end: 20051222
  32. TRASYLOL [Suspect]
     Dosage: 50 ML, Q1HR
     Route: 042
     Dates: start: 20051222, end: 20051222
  33. ELAVIL [Concomitant]
     Dosage: 25 MG, QD
     Route: 048
     Dates: start: 20040713, end: 20051220
  34. ISOVUE-128 [Concomitant]
     Dosage: 70 ML, UNK
     Dates: start: 20051221, end: 20051221
  35. PROTONIX [Concomitant]
     Dosage: 40 MG, QD
     Route: 048
     Dates: start: 20040727, end: 20050101
  36. LEVAQUIN [Concomitant]
     Indication: URINARY TRACT INFECTION
     Dosage: 750 MG, X3DAYS
     Dates: start: 20050920
  37. BUMEX [Concomitant]
     Dosage: 1 MG, Q8HRS
     Route: 042
     Dates: start: 20051222
  38. DOPAMINE [Concomitant]
     Route: 042

REACTIONS (5)
  - POSTOPERATIVE RENAL FAILURE [None]
  - EMOTIONAL DISTRESS [None]
  - NERVOUSNESS [None]
  - DEPRESSION [None]
  - FEAR OF DEATH [None]
